FAERS Safety Report 6743555-4 (Version None)
Quarter: 2010Q2

REPORT INFORMATION
  Report Type: 
  Country: None (occurrence: None)
  Receive Date: 20100527
  Receipt Date: 20100520
  Transmission Date: 20101027
  Serious: Yes (Life-Threatening, Hospitalization, Other)
  Sender: FDA-Public Use
  Company Number: GR-ROCHE-692496

PATIENT
  Sex: Female
  Weight: 63 kg

DRUGS (1)
  1. PEGASYS [Suspect]
     Indication: HEPATITIS B
     Dosage: STOP DATE: UNKNOWN DATE IN 2010
     Route: 058
     Dates: start: 20100115

REACTIONS (3)
  - MULTIPLE FRACTURES [None]
  - NAUSEA [None]
  - SUICIDE ATTEMPT [None]
